FAERS Safety Report 18520631 (Version 2)
Quarter: 2020Q4

REPORT INFORMATION
  Report Type: Spontaneous
  Country: JP (occurrence: JP)
  Receive Date: 20201119
  Receipt Date: 20201130
  Transmission Date: 20210114
  Serious: Yes (Death, Other)
  Sender: FDA-Public Use
  Company Number: JP-AMGEN-JPNSP2020024922

PATIENT
  Age: 70 Year
  Sex: Male
  Weight: 64 kg

DRUGS (10)
  1. BICALUTAMIDE. [Concomitant]
     Active Substance: BICALUTAMIDE
     Dosage: 80 MG, QD
     Route: 048
     Dates: start: 20191223, end: 20200109
  2. LOXONIN [Concomitant]
     Active Substance: LOXOPROFEN SODIUM
     Indication: ANALGESIC THERAPY
     Dosage: UNK
     Route: 048
  3. SOKEIKAKKETSUTO [ACHYRANTHES BIDENTATA ROOT;ANGELICA ACUTILOBA ROOT;AN [Concomitant]
     Indication: ANALGESIC THERAPY
     Dosage: UNK
     Route: 048
  4. MYONAL [EPIRIZOLE HYDROCHLORIDE] [Concomitant]
     Indication: ANALGESIC THERAPY
     Dosage: UNK
     Route: 048
  5. DENOTAS [Concomitant]
     Active Substance: CALCIUM CARBONATE\CHOLECALCIFEROL\MAGNESIUM CARBONATE
     Indication: MINERAL SUPPLEMENTATION
     Dosage: UNK UNK, BID
     Route: 048
     Dates: start: 20191115
  6. RANMARK [Suspect]
     Active Substance: DENOSUMAB
     Indication: METASTASES TO BONE
     Dosage: 120 MILLIGRAM, QD
     Route: 058
     Dates: start: 20191125, end: 20191125
  7. TEPRENONE [Concomitant]
     Active Substance: TEPRENONE
     Indication: GASTRIC DISORDER
     Dosage: 50 MILLIGRAM, TID
     Route: 048
     Dates: start: 20191115
  8. LOXOPROFEN [LOXOPROFEN SODIUM] [Concomitant]
     Active Substance: LOXOPROFEN SODIUM
     Indication: ANALGESIC THERAPY
     Dosage: 80 MILLIGRAM, TID
     Route: 048
     Dates: start: 20191115
  9. LEUPLIN [Concomitant]
     Active Substance: LEUPROLIDE ACETATE
     Dosage: 11.25 MG
     Route: 058
     Dates: start: 20191223
  10. GONAX [Suspect]
     Active Substance: DEGARELIX
     Indication: PROSTATE CANCER
     Dosage: 240 MILLIGRAM
     Route: 058
     Dates: start: 20191115, end: 20191115

REACTIONS (5)
  - Plasma cell myeloma [Fatal]
  - Disseminated intravascular coagulation [Fatal]
  - Anaemia [Fatal]
  - Platelet count decreased [Fatal]
  - Cerebral haemorrhage [Fatal]

NARRATIVE: CASE EVENT DATE: 20191223
